FAERS Safety Report 4756261-2 (Version None)
Quarter: 2005Q3

REPORT INFORMATION
  Report Type: 
  Country: None (occurrence: None)
  Receive Date: 20050830
  Receipt Date: 20050517
  Transmission Date: 20060218
  Serious: No
  Sender: FDA-Public Use
  Company Number: US-GLAXOSMITHKLINE-A0558951A

PATIENT
  Age: 31 Year
  Sex: Female

DRUGS (3)
  1. WELLBUTRIN XL [Suspect]
     Indication: DEPRESSION
     Dosage: 150MG PER DAY
     Route: 048
     Dates: end: 20050517
  2. CLONOPIN [Concomitant]
     Route: 065
  3. MUSCLE RELAXER [Concomitant]
     Route: 065

REACTIONS (2)
  - INSOMNIA [None]
  - NERVOUSNESS [None]
